FAERS Safety Report 5888142 (Version 2)
Quarter: 2012Q4

REPORT INFORMATION
  Report Type: 
  Country: US (occurrence: US)
  Receive Date: 20050929
  Receipt Date: 20121207
  Transmission Date: 20130627
  Serious: Yes (Hospitalization)
  Sender: FDA-Public Use
  Company Number: US-JNJFOC-20050801058

PATIENT
  Age: 87 Year
  Sex: Female

DRUGS (7)
  1. TYLENOL [Suspect]
  2. TYLENOL [Suspect]
     Indication: PRODUCT USED FOR UNKNOWN INDICATION
  3. IBUPROFEN [Suspect]
     Indication: ARTHRITIS
     Route: 065
     Dates: start: 2005, end: 200507
  4. VIOXX [Suspect]
     Indication: PRODUCT USED FOR UNKNOWN INDICATION
  5. FOSAMAX [Suspect]
     Indication: ARTHRITIS
     Dates: start: 200507
  6. FOSAMAX [Suspect]
     Indication: ARTHRITIS
     Dates: start: 2005, end: 200507
  7. VITAMINS [Concomitant]
     Dates: start: 1955

REACTIONS (1)
  - Ulcer haemorrhage [Unknown]
